FAERS Safety Report 8494515 (Version 3)
Quarter: 2015Q2

REPORT INFORMATION
  Report Type: Spontaneous
  Country: US (occurrence: US)
  Receive Date: 20120404
  Receipt Date: 20150519
  Transmission Date: 20150821
  Serious: Yes (Congenital Anomaly, Other)
  Sender: FDA-Public Use
  Company Number: US-ELI_LILLY_AND_COMPANY-US201203008438

PATIENT

DRUGS (4)
  1. PROZAC [Suspect]
     Active Substance: FLUOXETINE HYDROCHLORIDE
     Indication: PRODUCT USED FOR UNKNOWN INDICATION
     Dosage: 20 MG, QD
     Route: 064
  2. PROZAC [Suspect]
     Active Substance: FLUOXETINE HYDROCHLORIDE
     Indication: PRODUCT USED FOR UNKNOWN INDICATION
     Dosage: 20 MG, QD
     Route: 064
  3. TERBUTALINE [Concomitant]
     Active Substance: TERBUTALINE
     Indication: PREMATURE LABOUR
     Route: 064
  4. TERBUTALINE [Concomitant]
     Active Substance: TERBUTALINE
     Indication: PREMATURE LABOUR
     Route: 064

REACTIONS (3)
  - Foetal exposure during pregnancy [Recovered/Resolved]
  - Aortic stenosis [Unknown]
  - Breech presentation [Recovered/Resolved]
